FAERS Safety Report 6636111-X (Version None)
Quarter: 2010Q1

REPORT INFORMATION
  Report Type: 
  Country: None (occurrence: None)
  Receive Date: 20100309
  Receipt Date: 20100224
  Transmission Date: 20100710
  Serious: Yes (Other)
  Sender: FDA-Public Use
  Company Number: 230053J10CAN

PATIENT
  Age: 41 Year
  Sex: Male

DRUGS (2)
  1. REBIF [Suspect]
     Indication: RELAPSING-REMITTING MULTIPLE SCLEROSIS
     Dosage: 44 MCG, 3 IN 1 WEEKS, 44 MCG, 3 IN 1 WEEKS
     Dates: start: 20080625, end: 20080829
  2. REBIF [Suspect]
     Indication: RELAPSING-REMITTING MULTIPLE SCLEROSIS
     Dosage: 44 MCG, 3 IN 1 WEEKS, 44 MCG, 3 IN 1 WEEKS
     Dates: start: 20100121

REACTIONS (3)
  - DIPLEGIA [None]
  - HYPOAESTHESIA [None]
  - NAUSEA [None]
